FAERS Safety Report 5161400-8 (Version None)
Quarter: 2006Q4

REPORT INFORMATION
  Report Type: 
  Country: None (occurrence: None)
  Receive Date: 20061130
  Receipt Date: 20061123
  Transmission Date: 20070319
  Serious: Yes (Life-Threatening)
  Sender: FDA-Public Use
  Company Number: GB-ROCHE-472604

PATIENT
  Age: 38 Year
  Sex: Female

DRUGS (3)
  1. GRANISETRON  HCL [Suspect]
     Indication: NAUSEA
     Route: 042
     Dates: start: 20060930, end: 20061004
  2. PROMETHAZINE [Concomitant]
     Indication: NAUSEA
     Route: 030
     Dates: start: 20061001, end: 20061003
  3. TRAMADOL HCL [Concomitant]
     Route: 048
     Dates: start: 20060930, end: 20061004

REACTIONS (2)
  - DYSTONIA [None]
  - OCULOGYRATION [None]
